FAERS Safety Report 6011813-7 (Version None)
Quarter: 2008Q4

REPORT INFORMATION
  Report Type: 
  Country: None (occurrence: None)
  Receive Date: 20081218
  Receipt Date: 20080905
  Transmission Date: 20090506
  Serious: No
  Sender: FDA-Public Use
  Company Number: US-ABBOTT-08P-163-0474807-00

PATIENT
  Sex: Female
  Weight: 81.266 kg

DRUGS (1)
  1. MERIDIA [Suspect]
     Indication: WEIGHT DECREASED
     Route: 048
     Dates: start: 20060101, end: 20070101

REACTIONS (1)
  - DIZZINESS [None]
